FAERS Safety Report 20654638 (Version 1)
Quarter: 2022Q1

REPORT INFORMATION
  Report Type: Spontaneous
  Country: US (occurrence: None)
  Receive Date: 20220329
  Receipt Date: 20220329
  Transmission Date: 20220423
  Serious: Yes (Hospitalization)
  Sender: FDA-Public Use
  Company Number: None

PATIENT
  Age: 48 Year
  Sex: Male

DRUGS (8)
  1. AMBRISENTAN [Suspect]
     Active Substance: AMBRISENTAN
     Indication: Pulmonary hypertension
     Dosage: FREQUENCY : DAILY;?
     Route: 048
     Dates: start: 20090515
  2. SILDENAFIL [Concomitant]
     Active Substance: SILDENAFIL
  3. TIVICAY [Concomitant]
     Active Substance: DOLUTEGRAVIR SODIUM
  4. EDURANT [Concomitant]
     Active Substance: RILPIVIRINE HYDROCHLORIDE
  5. LASIX [Concomitant]
     Active Substance: FUROSEMIDE
  6. K-TAB [Concomitant]
     Active Substance: POTASSIUM CHLORIDE
  7. CICLOPIROX TOP SOLN [Concomitant]
  8. TRIAMCINOLONE TOP CREAM [Concomitant]

REACTIONS (4)
  - Cor pulmonale [None]
  - Hypotension [None]
  - Cellulitis [None]
  - Therapy change [None]

NARRATIVE: CASE EVENT DATE: 20220228
